FAERS Safety Report 9206858 (Version 1)
Quarter: 2013Q2

REPORT INFORMATION
  Report Type: Spontaneous
  Country: US (occurrence: US)
  Receive Date: 20130403
  Receipt Date: 20130403
  Transmission Date: 20140414
  Serious: Yes (Other)
  Sender: FDA-Public Use
  Company Number: US-JNJFOC-20130318538

PATIENT
  Age: 36 Year
  Sex: Female

DRUGS (2)
  1. CHILDREN^S BENADRYL ALLERGY CHERRY LIQUID [Suspect]
     Indication: MULTIPLE ALLERGIES
     Dosage: 1 TSP BEFORE BED 1 X PER DAY
     Route: 048
     Dates: end: 20130326
  2. CHILDREN^S BENADRYL ALLERGY CHERRY LIQUID [Suspect]
     Indication: SNEEZING
     Dosage: 1 TSP BEFORE BED 1 X PER DAY
     Route: 048
     Dates: end: 20130326

REACTIONS (1)
  - Tremor [Not Recovered/Not Resolved]
